FAERS Safety Report 8790983 (Version 1)
Quarter: 2012Q4

REPORT INFORMATION
  Report Type: Spontaneous
  Country: US (occurrence: None)
  Receive Date: 20120910
  Receipt Date: 20120910
  Transmission Date: 20130627
  Serious: Yes (Other)
  Sender: FDA-Public Use
  Company Number: MTVF20120002

PATIENT
  Age: 11 Year
  Sex: Female
  Weight: 43.09 kg

DRUGS (1)
  1. MULTI-VITAMIN\FLUORIDE [Suspect]
     Indication: SUPPLEMENTATION THERAPY
     Dosage: 1 mg, oral
     Route: 048
     Dates: end: 201208

REACTIONS (3)
  - Grand mal convulsion [None]
  - Partial seizures [None]
  - Product contamination [None]
